FAERS Safety Report 6533738-0 (Version None)
Quarter: 2010Q1

REPORT INFORMATION
  Report Type: 
  Country: None (occurrence: None)
  Receive Date: 20100111
  Receipt Date: 20090624
  Transmission Date: 20100710
  Serious: No
  Sender: FDA-Public Use
  Company Number: US-ABBOTT-09P-163-0581657-00

PATIENT
  Age: 74 Year
  Sex: Female
  Weight: 80.812 kg

DRUGS (6)
  1. VICODIN [Suspect]
     Indication: PAIN
     Dosage: 1 CAPLET
     Dates: start: 20090401
  2. TYLENOL ARTHRITIS EXTENDED RELIEF [Suspect]
     Indication: PAIN
     Route: 048
     Dates: start: 20090429
  3. EXTRA STRENGTH TYLENOL [Suspect]
     Indication: PAIN
     Dosage: Q4-6HOURS
     Route: 048
     Dates: start: 20090429
  4. CELEBREX [Concomitant]
     Indication: DRUG USE FOR UNKNOWN INDICATION
  5. SYNTHROID [Concomitant]
     Indication: DRUG USE FOR UNKNOWN INDICATION
  6. UNKNOWN MEDICATION [Concomitant]
     Indication: DRUG USE FOR UNKNOWN INDICATION

REACTIONS (4)
  - CONSTIPATION [None]
  - DRUG ADMINISTRATION ERROR [None]
  - INTENTIONAL DRUG MISUSE [None]
  - OVERDOSE [None]
